FAERS Safety Report 5389607-5 (Version None)
Quarter: 2007Q3

REPORT INFORMATION
  Report Type: 
  Country: None (occurrence: None)
  Receive Date: 20070717
  Receipt Date: 20070705
  Transmission Date: 20080115
  Serious: Yes (Hospitalization, Other)
  Sender: FDA-Public Use
  Company Number: US-PFIZER INC-2007055895

PATIENT
  Sex: Male
  Weight: 54.4 kg

DRUGS (5)
  1. LYRICA [Suspect]
     Indication: COMPLEX REGIONAL PAIN SYNDROME
     Dates: start: 20050101, end: 20070601
  2. EFFEXOR [Concomitant]
  3. LORTAB [Concomitant]
  4. MORPHINE [Concomitant]
  5. SOMA [Concomitant]

REACTIONS (3)
  - ADVERSE EVENT [None]
  - CONVULSION [None]
  - WEIGHT DECREASED [None]
